FAERS Safety Report 11738423 (Version 1)
Quarter: 2015Q4

REPORT INFORMATION
  Report Type: Report from Study
  Country: US (occurrence: US)
  Receive Date: 20151113
  Receipt Date: 20151113
  Transmission Date: 20160304
  Serious: Yes (Hospitalization, Other)
  Sender: FDA-Public Use
  Company Number: US-WATSON-2015-23658

PATIENT
  Age: 83 Year
  Sex: Male
  Weight: 79 kg

DRUGS (9)
  1. ABIRATERONE ACETATE [Suspect]
     Active Substance: ABIRATERONE ACETATE
     Indication: PROSTATE CANCER METASTATIC
     Dosage: 1200 MG TOTAL DOSE ADMINISTERED
     Route: 065
     Dates: start: 20140826
  2. NORVASC [Suspect]
     Active Substance: AMLODIPINE BESYLATE
     Indication: PRODUCT USED FOR UNKNOWN INDICATION
     Dosage: UNKNOWN
     Route: 065
  3. PREDNISONE. [Suspect]
     Active Substance: PREDNISONE
     Indication: PROSTATE CANCER METASTATIC
     Dosage: 120 MG TOTAL DOSE ADMINISTERED
     Route: 065
     Dates: start: 20140826
  4. AMIODARONE [Suspect]
     Active Substance: AMIODARONE
     Indication: PRODUCT USED FOR UNKNOWN INDICATION
     Dosage: 200 MG DAILY
     Route: 048
  5. DILACOR XR [Suspect]
     Active Substance: DILTIAZEM HYDROCHLORIDE
     Indication: PRODUCT USED FOR UNKNOWN INDICATION
     Dosage: UNKNOWN
     Route: 065
  6. HYDRALAZINE [Suspect]
     Active Substance: HYDRALAZINE HYDROCHLORIDE
     Indication: PRODUCT USED FOR UNKNOWN INDICATION
     Dosage: UNKNOWN
     Route: 065
  7. ISOSORBIDE (WATSON LABORATORIES) [Suspect]
     Active Substance: ISOSORBIDE
     Indication: PRODUCT USED FOR UNKNOWN INDICATION
     Dosage: UNKNOWN
     Route: 065
  8. ENZALUTAMIDE [Suspect]
     Active Substance: ENZALUTAMIDE
     Indication: PROSTATE CANCER METASTATIC
     Dosage: 1440 MG TOTAL DOSE ADMINISTERED
     Route: 065
     Dates: start: 20140826
  9. FUROSEMIDE (WATSON LABORATORIES) [Suspect]
     Active Substance: FUROSEMIDE
     Indication: PRODUCT USED FOR UNKNOWN INDICATION
     Dosage: UNKNOWN
     Route: 065

REACTIONS (8)
  - Influenza [Unknown]
  - Pleural effusion [Recovering/Resolving]
  - Cardiac failure congestive [None]
  - Chest pain [Recovering/Resolving]
  - Atrial fibrillation [Unknown]
  - Pulmonary oedema [Recovering/Resolving]
  - Respiratory tract infection [Unknown]
  - Cardiac failure [Recovering/Resolving]

NARRATIVE: CASE EVENT DATE: 2015
